FAERS Safety Report 11549140 (Version 14)
Quarter: 2016Q2

REPORT INFORMATION
  Report Type: Report from Study
  Country: US (occurrence: US)
  Receive Date: 20150924
  Receipt Date: 20160503
  Transmission Date: 20160815
  Serious: Yes (Hospitalization, Other)
  Sender: FDA-Public Use
  Company Number: US-ACTELION-A-NJ2015-124099

PATIENT
  Age: 49 Year
  Sex: Male

DRUGS (6)
  1. VELETRI [Suspect]
     Active Substance: EPOPROSTENOL
     Indication: PULMONARY HYPERTENSION
     Dosage: 10 NG/KG, PER MIN
     Route: 042
     Dates: start: 20150910
  2. TYVASO [Suspect]
     Active Substance: TREPROSTINIL
     Indication: PULMONARY HYPERTENSION
     Dosage: 18-54 UG, QID
     Route: 055
     Dates: start: 20140804
  3. VELETRI [Suspect]
     Active Substance: EPOPROSTENOL
     Dosage: UNK
     Route: 042
     Dates: start: 20150910
  4. VELETRI [Suspect]
     Active Substance: EPOPROSTENOL
     Dosage: UNK
     Route: 042
  5. REVATIO [Concomitant]
     Active Substance: SILDENAFIL CITRATE
  6. COUMADIN [Concomitant]
     Active Substance: WARFARIN SODIUM

REACTIONS (26)
  - Pain in extremity [Unknown]
  - Cardiac failure [Unknown]
  - Abdominal discomfort [Unknown]
  - Feeling abnormal [Unknown]
  - Headache [Unknown]
  - Musculoskeletal pain [Unknown]
  - Chest discomfort [Unknown]
  - Dyspnoea [Unknown]
  - Dyspnoea exertional [Unknown]
  - Nausea [Unknown]
  - Dizziness [Unknown]
  - Chest pain [Unknown]
  - Ascites [Unknown]
  - Anxiety [Unknown]
  - Fatigue [Unknown]
  - Malaise [Unknown]
  - Arthralgia [Unknown]
  - Blood uric acid increased [Unknown]
  - Face oedema [Unknown]
  - Affect lability [Unknown]
  - Abdominal distension [Unknown]
  - Gout [Unknown]
  - Blood creatinine increased [Unknown]
  - Diarrhoea [Unknown]
  - Back pain [Unknown]
  - Heart valve incompetence [Unknown]
